FAERS Safety Report 4551461-9 (Version None)
Quarter: 2005Q1

REPORT INFORMATION
  Report Type: 
  Country: None (occurrence: None)
  Receive Date: 20050111
  Receipt Date: 20041222
  Transmission Date: 20050727
  Serious: Yes (Hospitalization)
  Sender: FDA-Public Use
  Company Number: 2000-FF-S0619

PATIENT
  Age: 1 Day
  Sex: Male

DRUGS (15)
  1. VIRAMUNE [Suspect]
     Indication: ANTIVIRAL PROPHYLAXIS
     Dosage: PO
     Route: 048
     Dates: start: 20000306, end: 20000306
  2. VIRAMUNE [Suspect]
     Indication: HIV INFECTION
     Dosage: IU
     Route: 015
     Dates: end: 20000306
  3. VIDEX [Suspect]
     Indication: PROPHYLAXIS AGAINST HIV INFECTION
     Dosage: IU
     Route: 015
     Dates: end: 20000306
  4. ZERIT [Suspect]
     Indication: PROPHYLAXIS AGAINST HIV INFECTION
     Dosage: IU
     Route: 015
     Dates: end: 20000306
  5. CRIXIVAN [Suspect]
     Indication: PROPHYLAXIS AGAINST HIV INFECTION
     Dosage: IU
     Route: 015
  6. NORVIR [Suspect]
     Indication: PROPHYLAXIS AGAINST HIV INFECTION
     Dosage: IU
     Route: 015
  7. SUSTIVA (EFAVIRENZ) (NR) [Concomitant]
  8. COMBIVIR [Concomitant]
  9. INVIRASE (SAQUINAVIR MESILATE) (NR) [Concomitant]
  10. RETROVIR [Concomitant]
  11. BACTRIM (BACTRIM) (NR) [Concomitant]
  12. GYNOPEVARYL (NR) [Concomitant]
  13. LOXEN (NICARDIPINE HYDROCHLORIDE) (NR) [Concomitant]
  14. SALBUTAMOL (SALBUTAMOL) (NR) [Concomitant]
  15. SPASFON (SPASFON) (NR) [Concomitant]

REACTIONS (15)
  - ABNORMAL BEHAVIOUR [None]
  - ASPARTATE AMINOTRANSFERASE INCREASED [None]
  - BLOOD CREATINE PHOSPHOKINASE INCREASED [None]
  - BLOOD LACTATE DEHYDROGENASE INCREASED [None]
  - CAESAREAN SECTION [None]
  - COMMUNICATION DISORDER [None]
  - DEPRESSION [None]
  - DRUG EXPOSURE DURING PREGNANCY [None]
  - GASTROINTESTINAL DISORDER [None]
  - GASTROINTESTINAL HAEMORRHAGE [None]
  - HYPERTRIGLYCERIDAEMIA [None]
  - NEONATAL DISORDER [None]
  - NEUTROPENIA [None]
  - PYELONEPHRITIS [None]
  - SPEECH DISORDER [None]
